FAERS Safety Report 25664691 (Version 1)
Quarter: 2025Q3

REPORT INFORMATION
  Report Type: Spontaneous
  Country: US (occurrence: US)
  Receive Date: 20250811
  Receipt Date: 20250811
  Transmission Date: 20251020
  Serious: Yes (Hospitalization, Disabling, Other)
  Sender: MYLAN
  Company Number: US-MYLANLABS-2025M1066180

PATIENT
  Age: 77 Year
  Sex: Male

DRUGS (20)
  1. FENTANYL [Suspect]
     Active Substance: FENTANYL
     Indication: Tumour pain
  2. FENTANYL [Suspect]
     Active Substance: FENTANYL
     Route: 037
  3. FENTANYL [Suspect]
     Active Substance: FENTANYL
     Route: 037
  4. FENTANYL [Suspect]
     Active Substance: FENTANYL
  5. HYDROMORPHONE [Suspect]
     Active Substance: HYDROMORPHONE
     Indication: Tumour pain
  6. HYDROMORPHONE [Suspect]
     Active Substance: HYDROMORPHONE
     Route: 037
  7. HYDROMORPHONE [Suspect]
     Active Substance: HYDROMORPHONE
     Route: 037
  8. HYDROMORPHONE [Suspect]
     Active Substance: HYDROMORPHONE
  9. METHADONE HYDROCHLORIDE [Suspect]
     Active Substance: METHADONE HYDROCHLORIDE
     Indication: Tumour pain
     Dosage: 6 MILLIGRAM, QD
  10. METHADONE HYDROCHLORIDE [Suspect]
     Active Substance: METHADONE HYDROCHLORIDE
     Dosage: 6 MILLIGRAM, QD
     Route: 037
  11. METHADONE HYDROCHLORIDE [Suspect]
     Active Substance: METHADONE HYDROCHLORIDE
     Dosage: 6 MILLIGRAM, QD
     Route: 037
  12. METHADONE HYDROCHLORIDE [Suspect]
     Active Substance: METHADONE HYDROCHLORIDE
     Dosage: 6 MILLIGRAM, QD
  13. MORPHINE [Suspect]
     Active Substance: MORPHINE
     Indication: Tumour pain
  14. MORPHINE [Suspect]
     Active Substance: MORPHINE
     Route: 037
  15. MORPHINE [Suspect]
     Active Substance: MORPHINE
     Route: 037
  16. MORPHINE [Suspect]
     Active Substance: MORPHINE
  17. ZICONOTIDE [Suspect]
     Active Substance: ZICONOTIDE
     Indication: Tumour pain
  18. ZICONOTIDE [Suspect]
     Active Substance: ZICONOTIDE
     Route: 037
  19. ZICONOTIDE [Suspect]
     Active Substance: ZICONOTIDE
     Route: 037
  20. ZICONOTIDE [Suspect]
     Active Substance: ZICONOTIDE

REACTIONS (4)
  - Granuloma [Unknown]
  - Drug intolerance [Unknown]
  - Hypersensitivity [Unknown]
  - Pruritus [Unknown]
